FAERS Safety Report 24962278 (Version 2)
Quarter: 2025Q1

REPORT INFORMATION
  Report Type: Other
  Country: US (occurrence: US)
  Receive Date: 20250212
  Receipt Date: 20250225
  Transmission Date: 20250408
  Serious: Yes (Death)
  Sender: NOVARTIS
  Company Number: US-002147023-NVSC2025US024407

PATIENT

DRUGS (1)
  1. COSENTYX [Suspect]
     Active Substance: SECUKINUMAB
     Indication: Product used for unknown indication
     Route: 065

REACTIONS (11)
  - Death [Fatal]
  - Peripheral swelling [Unknown]
  - Ligament calcification [Unknown]
  - Skin burning sensation [Unknown]
  - Hypoaesthesia eye [Unknown]
  - Organ failure [Unknown]
  - Vitamin C deficiency [Unknown]
  - Diarrhoea [Unknown]
  - Headache [Unknown]
  - Scratch [Unknown]
  - Lacrimation increased [Unknown]
